FAERS Safety Report 6742522-4 (Version None)
Quarter: 2010Q2

REPORT INFORMATION
  Report Type: 
  Country: None (occurrence: None)
  Receive Date: 20100524
  Receipt Date: 20090416
  Transmission Date: 20101027
  Serious: Yes (Hospitalization)
  Sender: FDA-Public Use
  Company Number: 2009BH006167

PATIENT
  Age: 66 Year
  Sex: Female
  Weight: 80.7403 kg

DRUGS (3)
  1. CYTOXAN [Suspect]
     Indication: BREAST CANCER
     Dosage: 1104 MG; IV
     Route: 042
     Dates: start: 20090318, end: 20090318
  2. CYTOXAN [Suspect]
     Indication: BREAST CANCER
     Dosage: 1104 MG; IV
     Route: 042
     Dates: start: 20090408, end: 20090408
  3. ADRIAMYCIN PFS [Suspect]
     Indication: BREAST CANCER
     Dosage: 110 MG; IV
     Route: 042
     Dates: start: 20090408, end: 20090408

REACTIONS (2)
  - NAUSEA [None]
  - VOMITING [None]
